FAERS Safety Report 9643131 (Version 1)
Quarter: 2013Q4

REPORT INFORMATION
  Report Type: Spontaneous
  Country: US (occurrence: US)
  Receive Date: 20131024
  Receipt Date: 20131024
  Transmission Date: 20140711
  Serious: No
  Sender: FDA-Public Use
  Company Number: US-009507513-1310USA008071

PATIENT
  Sex: Female

DRUGS (3)
  1. FOSAMAX PLUS D [Suspect]
     Dosage: UNK
     Route: 048
     Dates: end: 2012
  2. FOSAMAX PLUS D [Suspect]
     Dosage: UNK
  3. PROLIA [Suspect]
     Dosage: UNK
     Dates: start: 2012

REACTIONS (1)
  - Immune system disorder [Unknown]
